FAERS Safety Report 25612744 (Version 2)
Quarter: 2025Q3

REPORT INFORMATION
  Report Type: Spontaneous
  Country: US (occurrence: US)
  Receive Date: 20250728
  Receipt Date: 20250731
  Transmission Date: 20251021
  Serious: Yes (Life-Threatening, Hospitalization, Other)
  Sender: PFIZER
  Company Number: US-PFIZER INC-202500149987

PATIENT
  Age: 36 Year
  Sex: Male

DRUGS (8)
  1. PACLITAXEL [Suspect]
     Active Substance: PACLITAXEL
     Indication: Squamous cell carcinoma of skin
     Dates: start: 202206, end: 202212
  2. CARBOPLATIN [Suspect]
     Active Substance: CARBOPLATIN
     Indication: Squamous cell carcinoma of skin
     Dosage: UNK, WEEKLY (AUC-2)
     Dates: start: 202206, end: 202212
  3. CEMIPLIMAB [Suspect]
     Active Substance: CEMIPLIMAB
     Indication: Squamous cell carcinoma of skin
     Dosage: 350 MG, EVERY 3 WEEKS
     Dates: start: 202202, end: 202212
  4. CETUXIMAB [Suspect]
     Active Substance: CETUXIMAB
     Indication: Squamous cell carcinoma of skin
     Dates: start: 202010
  5. CAPECITABINE [Suspect]
     Active Substance: CAPECITABINE
     Indication: Squamous cell carcinoma of skin
  6. TALIMOGENE LAHERPAREPVEC [Suspect]
     Active Substance: TALIMOGENE LAHERPAREPVEC
     Indication: Squamous cell carcinoma of skin
     Dates: start: 202112
  7. PREDNISONE [Suspect]
     Active Substance: PREDNISONE
     Indication: Squamous cell carcinoma of skin
     Dates: start: 202202, end: 202203
  8. TACROLIMUS [Suspect]
     Active Substance: TACROLIMUS
     Indication: Squamous cell carcinoma of skin
     Dates: start: 202202, end: 202203

REACTIONS (4)
  - Febrile neutropenia [Unknown]
  - Neutropenia [Unknown]
  - Toxicity to various agents [Unknown]
  - Off label use [Unknown]
